FAERS Safety Report 13819726 (Version 1)
Quarter: 2017Q3

REPORT INFORMATION
  Report Type: Spontaneous
  Country: NL (occurrence: NL)
  Receive Date: 20170801
  Receipt Date: 20170801
  Transmission Date: 20171127
  Serious: Yes (Other)
  Sender: FDA-Public Use
  Company Number: NL-TOLMAR, INC.-2017NL009983

PATIENT
  Sex: Male

DRUGS (3)
  1. ELIGARD [Suspect]
     Active Substance: LEUPROLIDE ACETATE
     Indication: PROSTATE CANCER
     Dosage: 22.5 MG, (1 DF (INJECTION)), PER 3 MONTHS
     Route: 058
     Dates: start: 20160201
  2. ELIGARD [Suspect]
     Active Substance: LEUPROLIDE ACETATE
     Dosage: 22.5 MG, (1 DF (INJECTION)), PER 3 MONTHS
     Route: 058
     Dates: start: 20170202
  3. ELIGARD [Suspect]
     Active Substance: LEUPROLIDE ACETATE
     Dosage: 22.5 MG, (1 DF (INJECTION)), PER 3 MONTHS
     Route: 058
     Dates: start: 20170509

REACTIONS (1)
  - Terminal state [Unknown]
